FAERS Safety Report 8401322-X (Version None)
Quarter: 2012Q2

REPORT INFORMATION
  Report Type: 
  Country: None (occurrence: None)
  Receive Date: 20120530
  Receipt Date: 20120530
  Transmission Date: 20120825
  Serious: Yes (Life-Threatening, Other)
  Sender: FDA-Public Use
  Company Number: None

PATIENT
  Age: 74 Year
  Sex: Female
  Weight: 72.5755 kg

DRUGS (1)
  1. EXFORGE HCT [Suspect]
     Indication: BLOOD PRESSURE INCREASED
     Dosage: 5/160/12.5 Q DAY P.O
     Route: 048
     Dates: start: 20101201, end: 20120401

REACTIONS (8)
  - MUSCLE SPASMS [None]
  - MUSCLE TWITCHING [None]
  - FALL [None]
  - BALANCE DISORDER [None]
  - ABNORMAL SENSATION IN EYE [None]
  - DIZZINESS [None]
  - MUSCULOSKELETAL PAIN [None]
  - VISION BLURRED [None]
